FAERS Safety Report 17086374 (Version 1)
Quarter: 2019Q4

REPORT INFORMATION
  Report Type: Spontaneous
  Country: US (occurrence: US)
  Receive Date: 20191031
  Receipt Date: 20191031
  Transmission Date: 20200122
  Serious: No
  Sender: FDA-Public Use
  Company Number: None

PATIENT
  Age: 60 Year
  Sex: Male

DRUGS (1)
  1. RITONAVIR TAB 100MG [Suspect]
     Active Substance: RITONAVIR
     Route: 048
     Dates: start: 201706

REACTIONS (2)
  - Inability to afford medication [None]
  - Product dose omission [None]

NARRATIVE: CASE EVENT DATE: 20191031
